FAERS Safety Report 20547860 (Version 9)
Quarter: 2025Q1

REPORT INFORMATION
  Report Type: Spontaneous
  Country: US (occurrence: US)
  Receive Date: 20220303
  Receipt Date: 20250225
  Transmission Date: 20250408
  Serious: Yes (Other)
  Sender: PFIZER
  Company Number: US-PFIZER INC-2021841525

PATIENT
  Age: 63 Year
  Sex: Female
  Weight: 110.68 kg

DRUGS (6)
  1. XELJANZ XR [Suspect]
     Active Substance: TOFACITINIB CITRATE
     Indication: Psoriatic arthropathy
     Dosage: 11 MG, DAILY
     Route: 048
     Dates: start: 202105
  2. XELJANZ XR [Suspect]
     Active Substance: TOFACITINIB CITRATE
     Dosage: ONE TABLET A DAY BY MOUTH IN MORNING
     Route: 048
  3. ASPIRIN [Concomitant]
     Active Substance: ASPIRIN
     Indication: Pain
  4. CALCIUM [Concomitant]
     Active Substance: CALCIUM
     Indication: Bone density abnormal
  5. ALBUTEROL SULFATE [Concomitant]
     Active Substance: ALBUTEROL SULFATE
     Indication: Dyspnoea
  6. MAGNESIUM ACETATE [Concomitant]
     Active Substance: MAGNESIUM ACETATE
     Indication: Muscle spasms

REACTIONS (4)
  - Knee arthroplasty [Unknown]
  - Cardiac failure congestive [Not Recovered/Not Resolved]
  - Gallbladder disorder [Unknown]
  - Biliary colic [Unknown]

NARRATIVE: CASE EVENT DATE: 20240101
